FAERS Safety Report 6587462-9 (Version None)
Quarter: 2010Q1

REPORT INFORMATION
  Report Type: 
  Country: None (occurrence: None)
  Receive Date: 20100217
  Receipt Date: 20090701
  Transmission Date: 20100710
  Serious: Yes (Disabling, Other)
  Sender: FDA-Public Use
  Company Number: US-ALLERGAN-0907605US

PATIENT
  Age: 45 Year
  Sex: Female
  Weight: 64.399 kg

DRUGS (2)
  1. BOTOX [Suspect]
     Indication: TORTICOLLIS
     Dosage: 100 UNITS, SINGLE
     Route: 030
     Dates: start: 20090326, end: 20090326
  2. BOTOX [Suspect]
     Indication: DYSTONIA

REACTIONS (1)
  - INJECTION SITE PAIN [None]
